FAERS Safety Report 20131124 (Version 3)
Quarter: 2022Q1

REPORT INFORMATION
  Report Type: Report from Study
  Country: CL (occurrence: None)
  Receive Date: 20211130
  Receipt Date: 20220204
  Transmission Date: 20220423
  Serious: Yes (Other)
  Sender: FDA-Public Use
  Company Number: CL-Merck Healthcare KGaA-9270552

PATIENT
  Age: 57 Year
  Sex: Female

DRUGS (1)
  1. REBIF [Suspect]
     Active Substance: INTERFERON BETA-1A
     Indication: Multiple sclerosis
     Route: 058
     Dates: start: 20170704, end: 2021

REACTIONS (17)
  - Asthenia [Recovering/Resolving]
  - Peripheral swelling [Recovering/Resolving]
  - Systemic lupus erythematosus [Recovering/Resolving]
  - Rheumatoid arthritis [Recovering/Resolving]
  - Anisocytosis [Unknown]
  - Anisochromia [Unknown]
  - Poikilocytosis [Unknown]
  - Neutrophil toxic granulation present [Unknown]
  - Platelet count increased [Unknown]
  - Rheumatoid factor increased [Unknown]
  - White blood cell count increased [Unknown]
  - DNA antibody positive [Unknown]
  - Neutrophil count increased [Unknown]
  - Blood test abnormal [Unknown]
  - Laboratory test abnormal [Unknown]
  - Lymphocyte count decreased [Unknown]
  - Limb discomfort [Recovered/Resolved]

NARRATIVE: CASE EVENT DATE: 20211001
